FAERS Safety Report 7952788-0 (Version None)
Quarter: 2011Q4

REPORT INFORMATION
  Report Type: 
  Country: None (occurrence: None)
  Receive Date: 20111201
  Receipt Date: 20111117
  Transmission Date: 20120403
  Serious: Yes (Life-Threatening, Other)
  Sender: FDA-Public Use
  Company Number: US-CTI_01401_2011

PATIENT
  Sex: Female

DRUGS (2)
  1. ZYFLO CR [Suspect]
     Indication: PRODUCT USED FOR UNKNOWN INDICATION
     Dosage: ONCE IN THE MORNING
     Route: 048
     Dates: start: 20110824, end: 20110824
  2. VITAMIN D [Concomitant]
     Indication: OSTEOPENIA
     Route: 048
     Dates: start: 20090101

REACTIONS (7)
  - HYPERHIDROSIS [None]
  - MIDDLE EAR EFFUSION [None]
  - SINUS HEADACHE [None]
  - HYPERSENSITIVITY [None]
  - RHINORRHOEA [None]
  - NAUSEA [None]
  - ANGIOEDEMA [None]
